FAERS Safety Report 8196490-1 (Version None)
Quarter: 2012Q1

REPORT INFORMATION
  Report Type: 
  Country: None (occurrence: None)
  Receive Date: 20120309
  Receipt Date: 20120301
  Transmission Date: 20120608
  Serious: Yes (Disabling)
  Sender: FDA-Public Use
  Company Number: US-AMGEN-USASP2012013822

PATIENT
  Sex: Male

DRUGS (5)
  1. FISH OIL [Concomitant]
  2. VITAMIN D [Concomitant]
  3. CONCERTA [Concomitant]
  4. ENBREL [Suspect]
     Indication: PSORIASIS
     Dosage: 50 MG, 2 TIMES/WK
     Dates: start: 20100901
  5. ASPIRIN [Concomitant]

REACTIONS (4)
  - DISABILITY [None]
  - PSORIASIS [None]
  - ARTHRALGIA [None]
  - GASTROOESOPHAGEAL REFLUX DISEASE [None]
